FAERS Safety Report 6934180-0 (Version None)
Quarter: 2010Q3

REPORT INFORMATION
  Report Type: 
  Country: None (occurrence: None)
  Receive Date: 20100820
  Receipt Date: 20100809
  Transmission Date: 20110219
  Serious: Yes (Death, Hospitalization, Other)
  Sender: FDA-Public Use
  Company Number: BR-GENENTECH-302941

PATIENT
  Sex: Female

DRUGS (2)
  1. RITUXIMAB [Suspect]
     Indication: RHEUMATOID ARTHRITIS
     Dosage: UNK
     Route: 042
     Dates: start: 20100518, end: 20100518
  2. RITUXIMAB [Suspect]
     Indication: MYOSITIS

REACTIONS (9)
  - ACUTE RESPIRATORY FAILURE [None]
  - COMA [None]
  - DERMATOMYOSITIS [None]
  - DYSPNOEA [None]
  - LUNG INFECTION [None]
  - NOSOCOMIAL INFECTION [None]
  - PNEUMONIA [None]
  - PULMONARY FIBROSIS [None]
  - PULMONARY OEDEMA [None]
